FAERS Safety Report 5323983-4 (Version None)
Quarter: 2007Q2

REPORT INFORMATION
  Report Type: 
  Country: None (occurrence: None)
  Receive Date: 20070221
  Receipt Date: 20060417
  Transmission Date: 20071010
  Serious: Yes (Hospitalization, Other)
  Sender: FDA-Public Use
  Company Number: PHEH2006US04501

PATIENT
  Age: 43 Year
  Sex: Male

DRUGS (6)
  1. DIOVAN [Suspect]
     Dosage: 160 MG, QD, ORAL
     Route: 048
     Dates: start: 20060101, end: 20060227
  2. NORVASC [Suspect]
     Dosage: 15 MG, QD, ORAL
     Route: 048
     Dates: start: 20060228
  3. LABETALOL HCL [Concomitant]
  4. DARBEPOETIN ALFA (DARBEPOETIN ALFA) [Concomitant]
  5. ALLOPURINOL [Concomitant]
  6. VITAMIN D [Concomitant]

REACTIONS (8)
  - ANGIOEDEMA [None]
  - ASTHENIA [None]
  - BLOOD CREATININE INCREASED [None]
  - BLOOD PRESSURE INCREASED [None]
  - FATIGUE [None]
  - SWELLING FACE [None]
  - SWOLLEN TONGUE [None]
  - TONGUE COATED [None]
